FAERS Safety Report 4736600-9 (Version None)
Quarter: 2005Q3

REPORT INFORMATION
  Report Type: 
  Country: None (occurrence: None)
  Receive Date: 20050804
  Receipt Date: 20050719
  Transmission Date: 20060218
  Serious: Yes (Hospitalization)
  Sender: FDA-Public Use
  Company Number: 2005BI013648

PATIENT
  Age: 68 Year
  Sex: Female

DRUGS (1)
  1. AVONEX [Suspect]
     Indication: MULTIPLE SCLEROSIS
     Dosage: 30 UG QW IM
     Route: 030
     Dates: start: 20040202

REACTIONS (10)
  - ARTHRALGIA [None]
  - ARTHROPOD BITE [None]
  - ASTHENIA [None]
  - BLOOD GLUCOSE INCREASED [None]
  - FALL [None]
  - LEG AMPUTATION [None]
  - LOCALISED INFECTION [None]
  - POOR PERIPHERAL CIRCULATION [None]
  - SKIN ULCER [None]
  - WOUND SECRETION [None]
